FAERS Safety Report 9557819 (Version 1)
Quarter: 2013Q3

REPORT INFORMATION
  Report Type: Report from Study
  Country: CA (occurrence: CA)
  Receive Date: 20130926
  Receipt Date: 20130926
  Transmission Date: 20140515
  Serious: Yes (Other)
  Sender: FDA-Public Use
  Company Number: CA-JNJFOC-20130912404

PATIENT
  Age: 61 Year
  Sex: Male
  Weight: 90 kg

DRUGS (2)
  1. REMICADE [Suspect]
     Indication: PSORIASIS
     Route: 042
     Dates: start: 20130613
  2. VITAMIN B 12 [Concomitant]
     Route: 065

REACTIONS (3)
  - Pain in extremity [Unknown]
  - Chest discomfort [Unknown]
  - Psoriasis [Unknown]
